FAERS Safety Report 7241865-8 (Version None)
Quarter: 2011Q1

REPORT INFORMATION
  Report Type: 
  Country: None (occurrence: None)
  Receive Date: 20110124
  Receipt Date: 20110119
  Transmission Date: 20110831
  Serious: Yes (Other)
  Sender: FDA-Public Use
  Company Number: US-PFIZER INC-2011013608

PATIENT
  Sex: Male
  Weight: 113.4 kg

DRUGS (5)
  1. LEVOXYL [Concomitant]
     Dosage: UNK
  2. LIPITOR [Concomitant]
     Dosage: UNK
  3. ZOLOFT [Concomitant]
     Dosage: UNK
  4. SUTENT [Suspect]
     Indication: RENAL CELL CARCINOMA
     Dosage: 50 MG, 1X/DAY
     Route: 048
     Dates: start: 20100601
  5. NORVASC [Concomitant]
     Dosage: UNK

REACTIONS (5)
  - DIVERTICULITIS [None]
  - LABORATORY TEST ABNORMAL [None]
  - BLOOD CREATININE INCREASED [None]
  - DIVERTICULAR PERFORATION [None]
  - COLITIS [None]
